FAERS Safety Report 7908339 (Version 4)
Quarter: 2013Q2

REPORT INFORMATION
  Report Type: Spontaneous
  Country: US (occurrence: US)
  Receive Date: 20110421
  Receipt Date: 20130604
  Transmission Date: 20140414
  Serious: Yes (Hospitalization, Other)
  Sender: FDA-Public Use
  Company Number: US-ROCHE-751891

PATIENT
  Age: 35 Year
  Sex: Male
  Weight: 61.2 kg

DRUGS (5)
  1. ACCUTANE [Suspect]
     Indication: ACNE
     Route: 065
     Dates: start: 19900108, end: 19900208
  2. ACCUTANE [Suspect]
     Route: 065
     Dates: start: 19900209, end: 19900309
  3. ACCUTANE [Suspect]
     Route: 065
     Dates: start: 19900310, end: 19900405
  4. ACCUTANE [Suspect]
     Route: 065
     Dates: start: 19900406, end: 19900506
  5. ACCUTANE [Suspect]
     Route: 065
     Dates: start: 19900511, end: 19900611

REACTIONS (13)
  - Colitis ulcerative [Not Recovered/Not Resolved]
  - Gastroenteritis [Unknown]
  - Pouchitis [Unknown]
  - Depression [Unknown]
  - Suicidal ideation [Unknown]
  - Anxiety [Unknown]
  - Anal stenosis [Unknown]
  - Anal fistula [Unknown]
  - Perirectal abscess [Unknown]
  - Anaemia [Unknown]
  - Leukocytosis [Unknown]
  - Haemorrhoids [Unknown]
  - Irritable bowel syndrome [Unknown]
